FAERS Safety Report 12823133 (Version 1)
Quarter: 2016Q4

REPORT INFORMATION
  Report Type: Spontaneous
  Country: US (occurrence: US)
  Receive Date: 20161006
  Receipt Date: 20161006
  Transmission Date: 20170207
  Serious: No
  Sender: FDA-Public Use
  Company Number: None

PATIENT
  Age: 56 Year
  Sex: Female

DRUGS (4)
  1. ADEMPAS [Suspect]
     Active Substance: RIOCIGUAT
     Indication: PULMONARY ARTERIAL HYPERTENSION
     Route: 048
     Dates: start: 20160425, end: 20160915
  2. ADEMPAS [Suspect]
     Active Substance: RIOCIGUAT
     Indication: HEART DISEASE CONGENITAL
     Route: 048
     Dates: start: 20160425, end: 20160915
  3. ADEMPAS [Suspect]
     Active Substance: RIOCIGUAT
     Indication: CONNECTIVE TISSUE DISORDER
     Route: 048
     Dates: start: 20160425, end: 20160915
  4. ADEMPAS [Suspect]
     Active Substance: RIOCIGUAT
     Indication: COR PULMONALE CHRONIC
     Route: 048
     Dates: start: 20160425, end: 20160915

REACTIONS (3)
  - Malaise [None]
  - Asthenia [None]
  - Feeling abnormal [None]

NARRATIVE: CASE EVENT DATE: 20161005
